FAERS Safety Report 11786922 (Version 1)
Quarter: 2015Q4

REPORT INFORMATION
  Report Type: Spontaneous
  Country: GB (occurrence: GB)
  Receive Date: 20151130
  Receipt Date: 20151130
  Transmission Date: 20160305
  Serious: No
  Sender: FDA-Public Use
  Company Number: GB-JNJFOC-20151120021

PATIENT

DRUGS (1)
  1. STELARA [Suspect]
     Active Substance: USTEKINUMAB
     Indication: PRODUCT USED FOR UNKNOWN INDICATION
     Route: 058
     Dates: start: 201509

REACTIONS (3)
  - Tumour marker abnormal [Unknown]
  - Abdominal pain lower [Unknown]
  - Carbohydrate antigen 125 increased [Unknown]
